FAERS Safety Report 4352570-X (Version None)
Quarter: 2004Q2

REPORT INFORMATION
  Report Type: 
  Country: None (occurrence: None)
  Receive Date: 20040503
  Receipt Date: 20040503
  Transmission Date: 20050107
  Serious: Yes (Other)
  Sender: FDA-Public Use
  Company Number: None

PATIENT
  Age: 25 Year
  Sex: Male
  Weight: 63.5036 kg

DRUGS (3)
  1. LEXAPRO [Suspect]
     Indication: DEPRESSION
     Dosage: 10 MG DAILY AT NIGHT
  2. LEXAPRO [Suspect]
     Indication: SCHIZOPHRENIA, PARANOID TYPE
     Dosage: 10 MG DAILY AT NIGHT
  3. SEROQUEL [Concomitant]

REACTIONS (4)
  - ABNORMAL BEHAVIOUR [None]
  - CONDITION AGGRAVATED [None]
  - DEPRESSION [None]
  - SOMNOLENCE [None]
